FAERS Safety Report 10237473 (Version 1)
Quarter: 2014Q2

REPORT INFORMATION
  Report Type: Spontaneous
  Country: NL (occurrence: NL)
  Receive Date: 20140615
  Receipt Date: 20140615
  Transmission Date: 20141212
  Serious: Yes (Other)
  Sender: FDA-Public Use
  Company Number: NL-AMGEN INC.-NLDSP2011071408

PATIENT
  Age: 64 Year
  Sex: Female

DRUGS (2)
  1. NEULASTA [Suspect]
     Indication: PROPHYLAXIS
     Dosage: 6 MG, 1X3W
     Route: 058
     Dates: start: 20110330, end: 20110511
  2. ARANESP [Suspect]
     Indication: NEPHROGENIC ANAEMIA
     Dosage: 500 MCG, 1X3W
     Route: 058
     Dates: start: 20110330, end: 20110511

REACTIONS (1)
  - Hypertension [Unknown]
